FAERS Safety Report 24378406 (Version 1)
Quarter: 2024Q3

REPORT INFORMATION
  Report Type: Other
  Country: AU (occurrence: AU)
  Receive Date: 20240930
  Receipt Date: 20240930
  Transmission Date: 20241017
  Serious: No
  Sender: TOLMAR
  Company Number: AU-TOLMAR, INC.-24AU052542

PATIENT
  Sex: Male

DRUGS (3)
  1. ELIGARD [Suspect]
     Active Substance: LEUPROLIDE ACETATE
     Indication: Prostate cancer
     Dosage: 22.5 MILLIGRAM, Q 3 MONTH (DELAYED DOSE)
  2. ELIGARD [Suspect]
     Active Substance: LEUPROLIDE ACETATE
     Indication: Prostate cancer
     Dosage: UNK
  3. CYPROTERONE ACETATE [Concomitant]
     Active Substance: CYPROTERONE ACETATE
     Indication: Product used for unknown indication

REACTIONS (1)
  - Intentional product use issue [Unknown]
